FAERS Safety Report 10056151 (Version 1)
Quarter: 2014Q2

REPORT INFORMATION
  Report Type: Spontaneous
  Country: US (occurrence: US)
  Receive Date: 20140403
  Receipt Date: 20140403
  Transmission Date: 20141212
  Serious: No
  Sender: FDA-Public Use
  Company Number: US-PFIZER INC-2014093247

PATIENT
  Age: 52 Year
  Sex: Female
  Weight: 92.97 kg

DRUGS (2)
  1. RELPAX [Suspect]
     Indication: MIGRAINE
     Dosage: 40 MG, AS NEEDED
     Dates: start: 201403
  2. DIOVAN HCT [Concomitant]
     Indication: HYPERTENSION
     Dosage: (VALSARTAN 160MG/HYDROCHLOROTHIAZIDE 12.5 MG), DAILY

REACTIONS (3)
  - Chest discomfort [Recovered/Resolved]
  - Musculoskeletal chest pain [Recovered/Resolved]
  - Myalgia [Recovered/Resolved]
